FAERS Safety Report 22374643 (Version 1)
Quarter: 2023Q2

REPORT INFORMATION
  Report Type: Spontaneous
  Country: IT (occurrence: IT)
  Receive Date: 20230526
  Receipt Date: 20230526
  Transmission Date: 20230721
  Serious: Yes (Other)
  Sender: FDA-Public Use
  Company Number: IT-TEVA-2023-IT-2889514

PATIENT
  Age: 75 Year
  Sex: Male

DRUGS (1)
  1. BISOPROLOL FUMARATE [Suspect]
     Active Substance: BISOPROLOL FUMARATE
     Indication: Product used for unknown indication
     Dosage: EVENING

REACTIONS (5)
  - Dysentery [Unknown]
  - Headache [Unknown]
  - Rhinorrhoea [Unknown]
  - Malaise [Unknown]
  - Feeling abnormal [Unknown]
